FAERS Safety Report 13830313 (Version 3)
Quarter: 2018Q2

REPORT INFORMATION
  Report Type: Spontaneous
  Country: US (occurrence: US)
  Receive Date: 20170803
  Receipt Date: 20180430
  Transmission Date: 20180711
  Serious: No
  Sender: FDA-Public Use
  Company Number: US-SA-2017SA127211

PATIENT
  Age: 75 Year
  Sex: Female

DRUGS (2)
  1. ALIROCUMAB PREFILLED PEN [Suspect]
     Active Substance: ALIROCUMAB
  2. PRALUENT [Suspect]
     Active Substance: ALIROCUMAB
     Route: 058

REACTIONS (11)
  - Erythema [Unknown]
  - Muscle spasms [Unknown]
  - Myalgia [Unknown]
  - Injection site reaction [Unknown]
  - Peripheral swelling [Unknown]
  - Alopecia [Unknown]
  - Injection site rash [Unknown]
  - Injection site urticaria [Unknown]
  - Injection site erythema [Unknown]
  - Erythema [Unknown]
  - Arthralgia [Unknown]

NARRATIVE: CASE EVENT DATE: 20170601
